FAERS Safety Report 18894046 (Version 1)
Quarter: 2021Q1

REPORT INFORMATION
  Report Type: Spontaneous
  Country: US (occurrence: US)
  Receive Date: 20210215
  Receipt Date: 20210215
  Transmission Date: 20210420
  Serious: Yes (Hospitalization, Other)
  Sender: FDA-Public Use
  Company Number: US-AMGEN-USASP2021021847

PATIENT
  Age: 79 Year
  Sex: Female

DRUGS (1)
  1. PROLIA [Suspect]
     Active Substance: DENOSUMAB
     Indication: PRODUCT USED FOR UNKNOWN INDICATION
     Dosage: UNK
     Route: 065

REACTIONS (7)
  - Nervousness [Unknown]
  - Influenza like illness [Unknown]
  - Pain [Unknown]
  - Renal failure [Unknown]
  - Malaise [Unknown]
  - Dry throat [Unknown]
  - Blood calcium increased [Unknown]

NARRATIVE: CASE EVENT DATE: 202101
